FAERS Safety Report 9858098 (Version 1)
Quarter: 2014Q1

REPORT INFORMATION
  Report Type: Spontaneous
  Country: US (occurrence: US)
  Receive Date: 20140131
  Receipt Date: 20140131
  Transmission Date: 20141002
  Serious: Yes (Death)
  Sender: FDA-Public Use
  Company Number: US-009507513-1401USA011739

PATIENT
  Age: 54 Year
  Sex: Male

DRUGS (2)
  1. VICTRELIS [Suspect]
     Dosage: UNK
     Route: 048
     Dates: start: 20140110
  2. VICTRELIS [Suspect]
     Dosage: UNK
     Route: 048
     Dates: start: 20131017

REACTIONS (1)
  - Death [Fatal]
